FAERS Safety Report 11047664 (Version 1)
Quarter: 2015Q2

REPORT INFORMATION
  Report Type: Spontaneous
  Country: US (occurrence: None)
  Receive Date: 20150417
  Receipt Date: 20150417
  Transmission Date: 20150821
  Serious: Yes (Other)
  Sender: FDA-Public Use
  Company Number: None

PATIENT
  Age: 11 Year
  Sex: Male
  Weight: 27.22 kg

DRUGS (2)
  1. CHILDRENS MUCUS RELIEF COUGH [Suspect]
     Active Substance: DEXTROMETHORPHAN HYDROBROMIDE\GUAIFENESIN
     Indication: COUGH
     Dates: start: 20150414
  2. ALBUTEROL. [Concomitant]
     Active Substance: ALBUTEROL

REACTIONS (5)
  - Lip swelling [None]
  - Urticaria [None]
  - Swollen tongue [None]
  - Abdominal pain upper [None]
  - Oesophageal pain [None]

NARRATIVE: CASE EVENT DATE: 20150414
